FAERS Safety Report 25064701 (Version 1)
Quarter: 2025Q1

REPORT INFORMATION
  Report Type: Spontaneous
  Country: FR (occurrence: FR)
  Receive Date: 20250311
  Receipt Date: 20250311
  Transmission Date: 20250408
  Serious: Yes (Other)
  Sender: NOVARTIS
  Company Number: FR-002147023-NVSC2025FR039784

PATIENT
  Age: 82 Year
  Sex: Male
  Weight: 89 kg

DRUGS (4)
  1. ENTRESTO [Suspect]
     Active Substance: SACUBITRIL\VALSARTAN
     Indication: Cardiac failure
     Dosage: UNK, QD (24 MG /26 MG)
     Route: 048
     Dates: start: 20230113, end: 20241209
  2. ENTRESTO [Suspect]
     Active Substance: SACUBITRIL\VALSARTAN
     Dosage: UNK (CAPSULE), BID (15 MG/16 MG)
     Route: 065
  3. ELIQUIS [Concomitant]
     Active Substance: APIXABAN
     Indication: Embolism venous
     Dosage: 2.5 MG, BID
     Route: 048
     Dates: start: 20200722, end: 20250107
  4. PANTOPRAZOLE [Concomitant]
     Active Substance: PANTOPRAZOLE
     Indication: Gastrooesophageal reflux disease
     Dosage: 20 MG, QD
     Route: 048
     Dates: start: 20110722

REACTIONS (2)
  - Anaemia [Recovered/Resolved]
  - Off label use [Unknown]
